FAERS Safety Report 23621761 (Version 1)
Quarter: 2024Q1

REPORT INFORMATION
  Report Type: Spontaneous
  Country: CA (occurrence: CA)
  Receive Date: 20240312
  Receipt Date: 20240312
  Transmission Date: 20240410
  Serious: Yes (Hospitalization)
  Sender: FDA-Public Use
  Company Number: CA-ANIPHARMA-2024-CA-001519

PATIENT
  Age: 69 Year
  Sex: Male

DRUGS (3)
  1. CANDESARTAN CILEXETIL [Suspect]
     Active Substance: CANDESARTAN CILEXETIL
     Indication: Product used for unknown indication
  2. INVOKANA [Suspect]
     Active Substance: CANAGLIFLOZIN
  3. SPIRONOLACTONE [Suspect]
     Active Substance: SPIRONOLACTONE

REACTIONS (3)
  - Hypovolaemia [Unknown]
  - Acute kidney injury [Unknown]
  - Hyperkalaemia [Unknown]
